FAERS Safety Report 12197313 (Version 1)
Quarter: 2016Q1

REPORT INFORMATION
  Report Type: Spontaneous
  Country: PR (occurrence: PR)
  Receive Date: 20160322
  Receipt Date: 20160322
  Transmission Date: 20160526
  Serious: No
  Sender: FDA-Public Use
  Company Number: PR-BRISTOL-MYERS SQUIBB COMPANY-BMS-2016-021174

PATIENT

DRUGS (2)
  1. APIXABAN [Suspect]
     Active Substance: APIXABAN
     Indication: PROTEIN C DEFICIENCY
     Dosage: 5 MG, BID
     Route: 065
  2. APIXABAN [Suspect]
     Active Substance: APIXABAN
     Indication: PROTEIN S DEFICIENCY

REACTIONS (3)
  - Haemorrhage [Unknown]
  - Colonoscopy [Unknown]
  - Off label use [Unknown]
